FAERS Safety Report 20472010 (Version 1)
Quarter: 2022Q1

REPORT INFORMATION
  Report Type: Report from Study
  Country: US (occurrence: US)
  Receive Date: 20220214
  Receipt Date: 20220214
  Transmission Date: 20220423
  Serious: Yes (Hospitalization)
  Sender: FDA-Public Use
  Company Number: US-TAKEDA-2021TUS061221

PATIENT
  Age: 28 Year
  Sex: Female

DRUGS (1)
  1. VEDOLIZUMAB [Suspect]
     Active Substance: VEDOLIZUMAB
     Indication: Crohn^s disease
     Dosage: 300 MILLIGRAM
     Route: 042
     Dates: start: 20210910

REACTIONS (4)
  - Gastroenteritis [Recovered/Resolved]
  - Arthralgia [Recovered/Resolved]
  - Pain in extremity [Recovered/Resolved]
  - Erythema nodosum [Recovering/Resolving]

NARRATIVE: CASE EVENT DATE: 20210910
